FAERS Safety Report 8895501 (Version 1)
Quarter: 2012Q4

REPORT INFORMATION
  Report Type: 
  Country: US (occurrence: US)
  Receive Date: 20121107
  Receipt Date: 20121107
  Transmission Date: 20130627
  Serious: Yes (Other)
  Sender: FDA-Public Use
  Company Number: CHPA2012US023008

PATIENT
  Age: 77 Year
  Sex: Female

DRUGS (7)
  1. EXCEDRIN EXTRA STRENGTH [Suspect]
     Indication: HEADACHE
     Dosage: 2 DF, QPM PRN
     Route: 048
  2. ONE-A-DAY WOMEN^S [Concomitant]
     Dosage: 1 DF, QD
  3. ICAPS [Concomitant]
     Dosage: 1 DF, QD
  4. GLYBURIDE W/METFORMIN [Concomitant]
     Indication: DIABETES MELLITUS
     Dosage: 5/500 mg, 2 per AM, 2 per PM
     Dates: start: 198605
  5. JANUVIA [Concomitant]
     Dosage: 50 mg, QD
  6. ENALAPRIL [Concomitant]
     Dosage: 10 mg, QD
  7. SIMVASTATIN [Concomitant]
     Dosage: 40 mg, QPM

REACTIONS (6)
  - Cataract [Recovered/Resolved]
  - Musculoskeletal pain [Not Recovered/Not Resolved]
  - Arthritis [Not Recovered/Not Resolved]
  - Headache [Not Recovered/Not Resolved]
  - Disease recurrence [Not Recovered/Not Resolved]
  - Fall [Unknown]
